FAERS Safety Report 5802981-8 (Version None)
Quarter: 2008Q2

REPORT INFORMATION
  Report Type: 
  Country: None (occurrence: None)
  Receive Date: 20080626
  Receipt Date: 20080410
  Transmission Date: 20081010
  Serious: No
  Sender: FDA-Public Use
  Company Number: US-CVT-080024

PATIENT
  Age: 71 Year
  Sex: Male

DRUGS (9)
  1. RANEXA [Suspect]
     Indication: ANGINA PECTORIS
     Dosage: 500 MG, QD, ORAL
     Route: 047
     Dates: start: 20080407
  2. ISOSORBIDE MONONITRATE (ISOSORIBIDE MONONITRATE) [Concomitant]
  3. AMLDIPINE (AMLODIPINE) [Concomitant]
  4. LISINOPRIL /00894001/ (LISINOPRIL) [Concomitant]
  5. ASPIRIN [Concomitant]
  6. FOLIC ACID [Concomitant]
  7. FISH OIL (FISH OIL) [Concomitant]
  8. COENZYME Q10 [Concomitant]
  9. THYROID HORMONES [Concomitant]

REACTIONS (2)
  - ASTHENIA [None]
  - INSOMNIA [None]
